FAERS Safety Report 23573302 (Version 1)
Quarter: 2024Q1

REPORT INFORMATION
  Report Type: Spontaneous
  Country: US (occurrence: US)
  Receive Date: 20240228
  Receipt Date: 20240228
  Transmission Date: 20240410
  Serious: No
  Sender: FDA-Public Use
  Company Number: US-BoehringerIngelheim-2024-BI-011180

PATIENT
  Age: 74 Year
  Sex: Male

DRUGS (2)
  1. TRIJARDY XR [Suspect]
     Active Substance: EMPAGLIFLOZIN\LINAGLIPTIN\METFORMIN HYDROCHLORIDE
     Indication: Type 2 diabetes mellitus
     Dosage: 25 MG EMPAGLIFLOZIN, 5 MG LINAGLIPTIN AND 2,000 MG METFORMIN HCL
     Dates: start: 2020
  2. CHOLESTEROL [Concomitant]
     Active Substance: CHOLESTEROL
     Indication: Product used for unknown indication

REACTIONS (2)
  - Glycosylated haemoglobin increased [Not Recovered/Not Resolved]
  - Blood glucose increased [Not Recovered/Not Resolved]
